FAERS Safety Report 5518947-1 (Version None)
Quarter: 2007Q4

REPORT INFORMATION
  Report Type: 
  Country: None (occurrence: None)
  Receive Date: 20071114
  Receipt Date: 20071114
  Transmission Date: 20080405
  Serious: Yes (Other)
  Sender: FDA-Public Use
  Company Number: None

PATIENT
  Age: 28 Year
  Sex: Female
  Weight: 64.8644 kg

DRUGS (1)
  1. YASMIN [Suspect]
     Indication: ORAL CONTRACEPTION
     Dosage: YASMIN   1 TIME DAY  PO
     Route: 048
     Dates: start: 20040301, end: 20071102

REACTIONS (3)
  - DEEP VEIN THROMBOSIS [None]
  - FOOT FRACTURE [None]
  - INJURY [None]
